FAERS Safety Report 6416669-6 (Version None)
Quarter: 2009Q4

REPORT INFORMATION
  Report Type: 
  Country: None (occurrence: None)
  Receive Date: 20091027
  Receipt Date: 20091015
  Transmission Date: 20100525
  Serious: Yes (Hospitalization)
  Sender: FDA-Public Use
  Company Number: GR-AMGEN-US370887

PATIENT
  Sex: Female

DRUGS (2)
  1. ENBREL [Suspect]
     Indication: RHEUMATOID ARTHRITIS
     Route: 058
  2. INSULIN [Concomitant]

REACTIONS (3)
  - DYSPNOEA EXERTIONAL [None]
  - HYPERHIDROSIS [None]
  - PYREXIA [None]
